FAERS Safety Report 13955544 (Version 7)
Quarter: 2020Q4

REPORT INFORMATION
  Report Type: Spontaneous
  Country: US (occurrence: US)
  Receive Date: 20170911
  Receipt Date: 20201228
  Transmission Date: 20210113
  Serious: Yes (Hospitalization, Other)
  Sender: FDA-Public Use
  Company Number: US-PFIZER INC-2017179428

PATIENT
  Age: 63 Year
  Sex: Female
  Weight: 53.52 kg

DRUGS (3)
  1. XELJANZ [Suspect]
     Active Substance: TOFACITINIB CITRATE
     Indication: RHEUMATOID ARTHRITIS
     Dosage: 5 MG, 2X/DAY
     Dates: start: 20161227, end: 20170813
  2. XELJANZ [Suspect]
     Active Substance: TOFACITINIB CITRATE
     Dosage: UNK (TAKING HALF OF HER MEDICATION )
  3. XELJANZ [Suspect]
     Active Substance: TOFACITINIB CITRATE
     Dosage: 5 MG, 2X/DAY
     Route: 048
     Dates: start: 201702, end: 20201023

REACTIONS (10)
  - Blood urea increased [Unknown]
  - Felty^s syndrome [Unknown]
  - SARS-CoV-2 test positive [Unknown]
  - Hepatic steatosis [Unknown]
  - Immune system disorder [Unknown]
  - Joint injury [Recovering/Resolving]
  - Intentional product use issue [Unknown]
  - Feeling abnormal [Unknown]
  - White blood cell count decreased [Not Recovered/Not Resolved]
  - Blood creatinine increased [Unknown]

NARRATIVE: CASE EVENT DATE: 20161227
